FAERS Safety Report 20688067 (Version 2)
Quarter: 2022Q2

REPORT INFORMATION
  Report Type: Spontaneous
  Country: US (occurrence: US)
  Receive Date: 20220408
  Receipt Date: 20220412
  Transmission Date: 20220721
  Serious: Yes (Other)
  Sender: FDA-Public Use
  Company Number: US-JNJFOC-20220405047

PATIENT
  Sex: Female

DRUGS (1)
  1. TYLENOL EXTRA STRENGTH [Suspect]
     Active Substance: ACETAMINOPHEN
     Indication: Product used for unknown indication
     Route: 048

REACTIONS (5)
  - Foreign body in throat [Recovered/Resolved]
  - Oropharyngeal discomfort [Unknown]
  - Gastric disorder [Recovering/Resolving]
  - Abdominal discomfort [Recovering/Resolving]
  - Product coating issue [Unknown]

NARRATIVE: CASE EVENT DATE: 20220331
